FAERS Safety Report 9314174 (Version 1)
Quarter: 2013Q2

REPORT INFORMATION
  Report Type: Spontaneous
  Country: FR (occurrence: None)
  Receive Date: 20130521
  Receipt Date: 20130521
  Transmission Date: 20140414
  Serious: Yes (Hospitalization)
  Sender: FDA-Public Use
  Company Number: DSM-2013-00470

PATIENT
  Age: 80 Year
  Sex: Male

DRUGS (8)
  1. SEVIKAR (OLMESARTAN MEDOXOMIL, AMLODIPINE BESILATE) (TABLET) (OLMESARTAN MEDOXOMIL, AMLODIPINE BESILATE) [Suspect]
     Indication: HYPERTENSION
     Route: 048
     Dates: start: 201209, end: 20130327
  2. KETUM [Suspect]
     Indication: PRODUCT USED FOR UNKNOWN INDICATION
     Route: 048
     Dates: start: 201209, end: 20130327
  3. EUPRESSYL (URAPIDIL) (URAPIDIL) [Concomitant]
  4. TEMERIT (NEBIVOLOL) (NEBIVOLOL) [Concomitant]
  5. PREVISCAN (FLUINDIONE) (FLUINDIONE) [Concomitant]
  6. LEVOTHYROX (LEVOTHYROXINE SODIUM) (LEVOTHYROXINE SODIUM) [Concomitant]
  7. SIMVASTATIN (SIMVASTATIN) (SIMVASTATIN) [Concomitant]
  8. TIMOLOL COLLYRIUM (TIMOLOL) (TIMOLOL) [Concomitant]

REACTIONS (8)
  - Dermatitis exfoliative [None]
  - Eosinophilia [None]
  - Pruritus [None]
  - Eye irritation [None]
  - Urticaria [None]
  - Bilirubin conjugated increased [None]
  - Gamma-glutamyltransferase increased [None]
  - Blood urea increased [None]
